FAERS Safety Report 5407756-X (Version None)
Quarter: 2007Q3

REPORT INFORMATION
  Report Type: 
  Country: None (occurrence: None)
  Receive Date: 20070807
  Receipt Date: 20070726
  Transmission Date: 20080115
  Serious: Yes (Hospitalization, Other)
  Sender: FDA-Public Use
  Company Number: US-SHR-US-2007-005476

PATIENT
  Age: 69 Year
  Sex: Female
  Weight: 78 kg

DRUGS (60)
  1. MAGNEVIST [Suspect]
     Dosage: 20 ML, 1 DOSE
     Route: 042
     Dates: start: 20060620, end: 20060620
  2. TECHNETIUM TC 99M [Concomitant]
     Dates: start: 20060601, end: 20060101
  3. GALLIUM (67 GA) [Concomitant]
     Dates: start: 20060601, end: 20060101
  4. DARBEPOETIN ALFA [Concomitant]
     Dosage: 100 A?G/0.5ML, 1X/WEEK
     Route: 058
     Dates: start: 20051209, end: 20060616
  5. DARBEPOETIN ALFA [Concomitant]
     Dosage: 150 A?G/.3ML, 1X/WEEK
     Route: 058
     Dates: start: 20060628, end: 20061219
  6. DARBEPOETIN ALFA [Concomitant]
     Dosage: 200 A?G/.4ML, 1X/2 WEEKS
     Route: 058
     Dates: start: 20061221, end: 20070118
  7. DARBEPOETIN ALFA [Concomitant]
     Dosage: 200 A?G/.4ML, 1X/WEEK
     Route: 058
     Dates: start: 20070206
  8. TRAMADOL HCL [Concomitant]
     Indication: PAIN
     Dosage: 50 MG, 3X/DAY
     Route: 048
     Dates: start: 20060110, end: 20061115
  9. TRAMADOL HCL [Concomitant]
     Dosage: 50 MG, 3X/DAY
     Route: 048
     Dates: start: 20070122, end: 20070211
  10. OMEPRAZOLE [Concomitant]
     Dosage: 20 MG, 1X/DAY
     Route: 048
     Dates: start: 20060523, end: 20061229
  11. METOLAZONE [Concomitant]
     Dosage: 5 MG, 1X/DAY
     Route: 048
     Dates: start: 20060928, end: 20070116
  12. NIFEREX [Concomitant]
  13. FELODIPINE [Concomitant]
     Dosage: 10 MG, 1X/DAY
     Route: 048
     Dates: start: 20060627, end: 20070116
  14. CALCIUM ACETATE [Concomitant]
     Dosage: 2 CAP(S), 3X/DAY
     Route: 048
     Dates: start: 20060831
  15. CALCIUM ACETATE [Concomitant]
     Dosage: 2 CAP(S), 3X/DAY
     Route: 048
     Dates: start: 20070201, end: 20070205
  16. CALCITRIOL [Concomitant]
     Dosage: 1 CAP(S), 1X/DAY
     Route: 048
     Dates: start: 20060801, end: 20061211
  17. CALCITRIOL [Concomitant]
     Dosage: 1 CAP(S), 1X/DAY
     Route: 048
     Dates: start: 20070220, end: 20070301
  18. ATENOLOL [Concomitant]
     Indication: HYPERTENSION
     Dosage: 50 MG, 1X/DAY
     Route: 048
     Dates: start: 20060523, end: 20070116
  19. ALLOPURINOL [Concomitant]
     Indication: GOUT
     Dosage: 100 MG, 1X/DAY
     Route: 048
     Dates: start: 20060627, end: 20070116
  20. CLOBETASOL PROPIONATE [Concomitant]
     Indication: PSORIASIS
     Dosage: UNK, 1X/DAY
     Route: 061
  21. DIPHENHYDRAMINE HYDROCHLORIDE [Concomitant]
     Dosage: 25 MG, 4X/DAY
     Route: 048
     Dates: start: 20060524, end: 20070101
  22. VANCOMYCIN [Concomitant]
     Dosage: 2 G, 1X/WEEK
     Route: 033
     Dates: start: 20070216, end: 20070220
  23. VANCOMYCIN [Concomitant]
     Dosage: 2 G, 1 DOSE
     Route: 042
     Dates: start: 20070215, end: 20070215
  24. VANCOMYCIN [Concomitant]
     Dosage: 2 G, 1 DOSE
     Route: 033
     Dates: start: 20061226, end: 20061226
  25. MORPHINE HYDROCHLORIDE [Concomitant]
     Dosage: 15 MG, EVERY 12H
     Route: 048
     Dates: start: 20070220, end: 20070220
  26. MORPHINE HYDROCHLORIDE [Concomitant]
     Dosage: 15 MG, 1X/DAY
     Route: 048
     Dates: start: 20070118, end: 20070118
  27. MORPHINE HYDROCHLORIDE [Concomitant]
     Dosage: 15 MG, 1X/DAY
     Route: 048
     Dates: start: 20061221, end: 20061221
  28. MORPHINE HYDROCHLORIDE [Concomitant]
     Dosage: 15 MG, BED T.
     Route: 048
     Dates: start: 20061005, end: 20061005
  29. MORPHINE HYDROCHLORIDE [Concomitant]
     Dosage: 15 MG, 1X/DAY
     Route: 048
     Dates: start: 20060816, end: 20060816
  30. MORPHINE HYDROCHLORIDE [Concomitant]
     Dosage: 15 MG, 1X/DAY
     Route: 048
     Dates: start: 20060712, end: 20060712
  31. LEVOTHYROXINE SODIUM [Concomitant]
     Dosage: .1 MG, 1X/DAY
     Route: 048
     Dates: start: 20070206, end: 20070206
  32. LEVOTHYROXINE SODIUM [Concomitant]
     Dosage: .088 MG, 1X/DAY
     Route: 048
     Dates: start: 20070116, end: 20070116
  33. LEVOTHYROXINE SODIUM [Concomitant]
     Dosage: .075 MG, 1X/DAY
     Route: 048
     Dates: start: 20061206, end: 20061207
  34. LEVOTHYROXINE SODIUM [Concomitant]
     Dosage: .05 MG, 1X/DAY
     Route: 048
     Dates: start: 20061026, end: 20061127
  35. LEVOTHYROXINE SODIUM [Concomitant]
     Dosage: .025 MG, 1X/DAY
     Route: 048
     Dates: start: 20060928, end: 20061026
  36. LEVALBUTEROL HYDROCHLORIDE [Concomitant]
     Dosage: 2 PUFF, EVERY 4H
     Route: 055
     Dates: start: 20060504, end: 20070116
  37. DOCUSATE SODIUM [Concomitant]
     Indication: BOWEL MOVEMENT IRREGULARITY
     Dosage: 100 MG, 3X/DAY
     Route: 048
     Dates: start: 20060721, end: 20070116
  38. DOCUSATE SODIUM [Concomitant]
     Dosage: 1 TAB(S), 2X/DAY
     Route: 048
     Dates: start: 20060802, end: 20060803
  39. LIDOCAINE [Concomitant]
     Indication: PAIN
     Route: 061
     Dates: start: 20061207, end: 20070116
  40. LIDOCAINE [Concomitant]
     Dosage: UNK, 2X/DAY
     Route: 061
     Dates: start: 20060706, end: 20061127
  41. MUPIROCIN [Concomitant]
     Dosage: UNK, AS REQ'D
     Route: 061
     Dates: start: 20061226, end: 20070116
  42. PROCHLORPERAZINE MALEATE [Concomitant]
     Dosage: 10 MG, 4X/DAY
     Route: 048
     Dates: start: 20061226, end: 20070116
  43. CALCIPOTRIENE [Concomitant]
     Dosage: UNK, 2X/DAY
     Route: 061
     Dates: start: 20061229, end: 20061229
  44. LIDOCAINE [Concomitant]
     Dosage: 1 T
     Route: 048
     Dates: start: 20061226, end: 20061226
  45. AMOXICILLIN W/CLAVULANATE POTASSIUM [Concomitant]
     Dosage: 1 TAB(S), 1X/DAY
     Route: 048
     Dates: start: 20061219, end: 20061219
  46. BUTOCONAZOLE [Concomitant]
     Dosage: 1 APPLICATOR
     Route: 067
     Dates: start: 20060302, end: 20061205
  47. GENTAMYCIN-MP [Concomitant]
     Dosage: UNK, 1X/DAY
     Route: 061
     Dates: start: 20060928, end: 20061205
  48. SARNA [Concomitant]
     Dosage: UNK, 1X/DAY
     Route: 061
     Dates: start: 20061201, end: 20061201
  49. AQUAPHOR                                /USA/ [Concomitant]
     Dosage: UNK, 2X/DAY
     Route: 061
     Dates: start: 20061201, end: 20061201
  50. NASALIDE [Concomitant]
     Dosage: 1 PUFF, 2X/DAY
     Route: 045
     Dates: start: 20061103, end: 20061103
  51. LORAZEPAM [Concomitant]
     Indication: SLEEP DISORDER THERAPY
     Dosage: .5 MG, BED T.
     Route: 048
     Dates: start: 20061103, end: 20061103
  52. LEVOFLOXACIN [Concomitant]
     Indication: INFECTION
     Dosage: EVERY OTHER DAY
     Route: 048
     Dates: start: 20061031, end: 20061101
  53. RECOMBIVAX HB [Concomitant]
     Dosage: 40 A?G, 1 DOSE
     Route: 030
     Dates: start: 20060905, end: 20060908
  54. CLOTRIMAZOLE [Concomitant]
     Indication: FUNGAL INFECTION
     Dosage: TROCHE
     Route: 048
     Dates: start: 20060817, end: 20060817
  55. CLOTRIMAZOLE [Concomitant]
     Dosage: 1 APPLICATOR CREAM
     Route: 067
     Dates: start: 20060302, end: 20061030
  56. CLINDAMYCIN HYDROCHLORIDE [Concomitant]
     Indication: INFECTION
     Dosage: 150 MG, OTHER
     Route: 048
     Dates: start: 20060320, end: 20060801
  57. BUPROPION HCL [Concomitant]
     Dosage: 100 MG, EVERY 12H
     Route: 048
     Dates: start: 20060801, end: 20060801
  58. BUPROPION HCL [Concomitant]
     Dosage: 75 MG, OTHER
     Route: 048
     Dates: start: 20060706, end: 20060706
  59. GABAPENTIN [Concomitant]
     Indication: PAIN
     Dosage: 100 MG, BED T.
     Route: 048
     Dates: start: 20060706, end: 20060706
  60. CITALOPRAM HYDROBROMIDE [Concomitant]
     Indication: DEPRESSION
     Dosage: 20 MG, 1X/DAY
     Route: 048
     Dates: start: 20060619, end: 20060619

REACTIONS (2)
  - HYPOXIA [None]
  - NEPHROGENIC SYSTEMIC FIBROSIS [None]
